FAERS Safety Report 9562210 (Version 1)
Quarter: 2013Q3

REPORT INFORMATION
  Report Type: Spontaneous
  Country: FR (occurrence: FR)
  Receive Date: 20130927
  Receipt Date: 20130927
  Transmission Date: 20140515
  Serious: Yes (Hospitalization)
  Sender: FDA-Public Use
  Company Number: PHHY2013FR107495

PATIENT
  Age: 70 Year
  Sex: Female

DRUGS (7)
  1. ACLASTA [Suspect]
     Indication: OSTEOPOROSIS
     Dosage: 5 MG, UNK
     Route: 042
     Dates: start: 201004
  2. ACLASTA [Suspect]
     Dosage: 5 MG, UNK
     Route: 042
     Dates: start: 20111103
  3. DURAGESIC [Concomitant]
     Indication: BACK PAIN
     Dosage: 50 UG, / 72 HOURS
     Route: 062
  4. EXJADE [Concomitant]
     Indication: MYELODYSPLASTIC SYNDROME
     Dosage: 500 MG, QD
     Route: 048
  5. EXJADE [Concomitant]
     Indication: IRON OVERLOAD
  6. LEVOTHYROX [Concomitant]
     Indication: HYPOTHYROIDISM
     Dosage: 100 UG, QD
     Route: 048
  7. DAFALGAN [Concomitant]
     Dosage: 1 G, TID
     Route: 048

REACTIONS (1)
  - Osteonecrosis [Recovered/Resolved]
